FAERS Safety Report 8470176-8 (Version None)
Quarter: 2012Q2

REPORT INFORMATION
  Report Type: 
  Country: None (occurrence: None)
  Receive Date: 20120621
  Receipt Date: 20120621
  Transmission Date: 20120825
  Serious: Yes (Life-Threatening)
  Sender: FDA-Public Use
  Company Number: None

PATIENT
  Age: 41 Year
  Sex: Male
  Weight: 59.4212 kg

DRUGS (1)
  1. ZESTORETIC [Suspect]
     Indication: UPPER RESPIRATORY TRACT INFECTION
     Dates: start: 20120618, end: 20120618

REACTIONS (7)
  - DIZZINESS [None]
  - PALPITATIONS [None]
  - DRUG PRESCRIBING ERROR [None]
  - DRUG DISPENSING ERROR [None]
  - FATIGUE [None]
  - CHEST PAIN [None]
  - WRONG DRUG ADMINISTERED [None]
